FAERS Safety Report 6235934-9 (Version None)
Quarter: 2009Q2

REPORT INFORMATION
  Report Type: 
  Country: None (occurrence: None)
  Receive Date: 20090619
  Receipt Date: 20090609
  Transmission Date: 20091009
  Serious: Yes (Disabling)
  Sender: FDA-Public Use
  Company Number: PHHY2009PT22169

PATIENT
  Sex: Male
  Weight: 60 kg

DRUGS (1)
  1. VOLTAREN [Suspect]
     Indication: OSTEOARTHRITIS
     Dosage: 75 MG, TID
     Route: 048
     Dates: start: 20080201, end: 20090201

REACTIONS (4)
  - BLISTER [None]
  - DERMATITIS BULLOUS [None]
  - ERYTHEMA [None]
  - SKIN ULCER [None]
